FAERS Safety Report 15677288 (Version 1)
Quarter: 2018Q4

REPORT INFORMATION
  Report Type: Spontaneous
  Country: IT (occurrence: IT)
  Receive Date: 20181130
  Receipt Date: 20181130
  Transmission Date: 20190205
  Serious: Yes (Hospitalization)
  Sender: FDA-Public Use
  Company Number: IT-ASTRAZENECA-2018SF55073

PATIENT
  Age: 19 Year
  Sex: Female

DRUGS (5)
  1. EUTIROX [Suspect]
     Active Substance: LEVOTHYROXINE SODIUM
     Indication: INTENTIONAL OVERDOSE
     Dosage: 21.0DF ONCE/SINGLE ADMINISTRATION
     Route: 048
     Dates: start: 20181024, end: 20181024
  2. XANAX [Suspect]
     Active Substance: ALPRAZOLAM
     Indication: INTENTIONAL OVERDOSE
     Dosage: 6.0DF ONCE/SINGLE ADMINISTRATION
     Route: 048
     Dates: start: 20181024, end: 20181024
  3. TACHIPIRINA [Suspect]
     Active Substance: ACETAMINOPHEN
     Indication: INTENTIONAL OVERDOSE
     Dosage: 16.0DF ONCE/SINGLE ADMINISTRATION
     Route: 048
     Dates: start: 20181024, end: 20181024
  4. MOMENDOL [Suspect]
     Active Substance: NAPROXEN SODIUM
     Indication: INTENTIONAL OVERDOSE
     Dosage: 4.0DF ONCE/SINGLE ADMINISTRATION
     Route: 048
     Dates: start: 20181024, end: 20181024
  5. QUETIAPINE FUMARATE. [Suspect]
     Active Substance: QUETIAPINE FUMARATE
     Indication: INTENTIONAL OVERDOSE
     Dosage: 75.0MG ONCE/SINGLE ADMINISTRATION
     Route: 048
     Dates: start: 20181024, end: 20181024

REACTIONS (6)
  - Electrocardiogram QT prolonged [Recovered/Resolved]
  - Nausea [Recovered/Resolved]
  - Abdominal pain upper [Recovered/Resolved]
  - Bundle branch block right [Recovered/Resolved]
  - Sopor [Recovered/Resolved]
  - Tachycardia [Recovered/Resolved]

NARRATIVE: CASE EVENT DATE: 20181024
